FAERS Safety Report 6565786-9 (Version None)
Quarter: 2010Q1

REPORT INFORMATION
  Report Type: 
  Country: None (occurrence: None)
  Receive Date: 20100126
  Receipt Date: 20100114
  Transmission Date: 20100710
  Serious: Yes (Other)
  Sender: FDA-Public Use
  Company Number: 237033K09USA

PATIENT
  Age: 43 Year
  Sex: Female
  Weight: 108 kg

DRUGS (14)
  1. REBIF [Suspect]
     Indication: MULTIPLE SCLEROSIS
     Dosage: 44 MCG, 3 IN 1 WEEKS, SUBCUTANEOUS; 22 MCG, 3 IN 1 WEEKS, SUBCUTANEOUS
     Route: 058
     Dates: start: 20090324, end: 20090501
  2. REBIF [Suspect]
     Indication: MULTIPLE SCLEROSIS
     Dosage: 44 MCG, 3 IN 1 WEEKS, SUBCUTANEOUS; 22 MCG, 3 IN 1 WEEKS, SUBCUTANEOUS
     Route: 058
     Dates: start: 20090622
  3. METFORMIN HCL [Concomitant]
  4. TRICOR [Concomitant]
  5. ENALAPRIL (ENALAPRIL /00574901/) [Concomitant]
  6. HYDRO-APAP (PROCET /015574901/) [Concomitant]
  7. ELAVIL [Concomitant]
  8. AMITRIPTYLINE HCL [Concomitant]
  9. ALLOPURINOL [Concomitant]
  10. TOPAMAX [Concomitant]
  11. LOVAZA (OMEGA-3 TRIGLYCERIDES) [Concomitant]
  12. AMBIEN [Concomitant]
  13. ADVIL [Concomitant]
  14. SOMA [Concomitant]

REACTIONS (4)
  - ALANINE AMINOTRANSFERASE INCREASED [None]
  - ASPARTATE AMINOTRANSFERASE INCREASED [None]
  - LABORATORY TEST ABNORMAL [None]
  - LIVER DISORDER [None]
